FAERS Safety Report 7345827-1 (Version None)
Quarter: 2011Q1

REPORT INFORMATION
  Report Type: 
  Country: None (occurrence: None)
  Receive Date: 20110311
  Receipt Date: 20110307
  Transmission Date: 20110831
  Serious: Yes (Hospitalization)
  Sender: FDA-Public Use
  Company Number: BE-BIOGENIDEC-2011BI008615

PATIENT
  Age: 39 Year
  Sex: Female

DRUGS (5)
  1. XANAX [Concomitant]
  2. VALTRAN [Concomitant]
  3. PREGABALINE [Concomitant]
  4. AVONEX [Suspect]
     Indication: MULTIPLE SCLEROSIS
     Route: 030
     Dates: start: 20100630, end: 20101227
  5. ANTI-COAGULANT THERAPY NOS [Concomitant]

REACTIONS (2)
  - CHEST PAIN [None]
  - RESPIRATORY DISTRESS [None]
